FAERS Safety Report 6119831-5 (Version None)
Quarter: 2009Q1

REPORT INFORMATION
  Report Type: 
  Country: None (occurrence: None)
  Receive Date: 20090316
  Receipt Date: 20090305
  Transmission Date: 20090719
  Serious: Yes (Other)
  Sender: FDA-Public Use
  Company Number: PHHY2009DE08325

PATIENT
  Sex: Female

DRUGS (3)
  1. SANDIMMUNE [Suspect]
     Indication: PANCYTOPENIA
     Dosage: 100 MG, BID
     Route: 048
     Dates: start: 20080501, end: 20081201
  2. CALCIUM [Concomitant]
  3. MAGNESIUM SULFATE [Concomitant]
     Route: 048

REACTIONS (10)
  - ALANINE AMINOTRANSFERASE INCREASED [None]
  - ANGINA PECTORIS [None]
  - ASPARTATE AMINOTRANSFERASE INCREASED [None]
  - CHEST PAIN [None]
  - DIZZINESS [None]
  - LIVER FUNCTION TEST ABNORMAL [None]
  - OESOPHAGEAL SPASM [None]
  - PERICARDIAL EFFUSION [None]
  - STOMATITIS [None]
  - TREMOR [None]
